FAERS Safety Report 18654973 (Version 1)
Quarter: 2020Q4

REPORT INFORMATION
  Report Type: Spontaneous
  Country: CN (occurrence: CN)
  Receive Date: 20201223
  Receipt Date: 20201223
  Transmission Date: 20210114
  Serious: Yes (Disabling)
  Sender: FDA-Public Use
  Company Number: CN-PFIZER INC-2020503807

PATIENT
  Age: 23 Year
  Sex: Female
  Weight: 42.1 kg

DRUGS (4)
  1. ZAVEDOS [Suspect]
     Active Substance: IDARUBICIN
     Indication: PLASMA CELL MYELOMA
     Dosage: 10 MG, 1X/DAY
     Route: 042
     Dates: start: 20201104, end: 20201106
  2. CYCLOPHOSPHAMIDE. [Suspect]
     Active Substance: CYCLOPHOSPHAMIDE
     Indication: PLASMA CELL MYELOMA
     Dosage: 1 G, 1X/DAY
     Route: 041
     Dates: start: 20201104, end: 20201104
  3. GE NI KE [IMATINIB MESYLATE] [Suspect]
     Active Substance: IMATINIB MESYLATE
     Indication: PLASMA CELL MYELOMA
     Dosage: 400 MG, 1X/DAY
     Route: 048
     Dates: start: 20201103, end: 20201120
  4. VINCRISTINE SULFATE. [Suspect]
     Active Substance: VINCRISTINE SULFATE
     Indication: PLASMA CELL MYELOMA
     Dosage: 2 MG, 1X/DAY
     Route: 042
     Dates: start: 20201104, end: 20201104

REACTIONS (3)
  - Neutrophil count decreased [Recovering/Resolving]
  - Hypoaesthesia [Recovering/Resolving]
  - White blood cell count decreased [Recovering/Resolving]

NARRATIVE: CASE EVENT DATE: 20201112
